FAERS Safety Report 7798023-8 (Version None)
Quarter: 2011Q4

REPORT INFORMATION
  Report Type: 
  Country: None (occurrence: None)
  Receive Date: 20111004
  Receipt Date: 20111004
  Transmission Date: 20120403
  Serious: Yes (Other)
  Sender: FDA-Public Use
  Company Number: None

PATIENT
  Sex: Male

DRUGS (1)
  1. PENICILLIN [Suspect]
     Dosage: 500MG Q6H PO
     Route: 048
     Dates: start: 20110830

REACTIONS (1)
  - RASH [None]
